FAERS Safety Report 4404320-6 (Version None)
Quarter: 2004Q3

REPORT INFORMATION
  Report Type: 
  Country: None (occurrence: None)
  Receive Date: 20040719
  Receipt Date: 20040713
  Transmission Date: 20050211
  Serious: Yes (Life-Threatening, Hospitalization)
  Sender: FDA-Public Use
  Company Number: 2004AP03626

PATIENT
  Age: 47 Year

DRUGS (1)
  1. IRESSA [Suspect]
     Indication: CARCINOMA
     Dosage: 250 MG DAILY PO
     Route: 048
     Dates: end: 20040627

REACTIONS (5)
  - DIARRHOEA [None]
  - HENOCH-SCHONLEIN PURPURA [None]
  - ILEUS [None]
  - MELAENA [None]
  - RASH [None]
